FAERS Safety Report 17903074 (Version 9)
Quarter: 2020Q4

REPORT INFORMATION
  Report Type: Report from Study
  Country: DE (occurrence: DE)
  Receive Date: 20200616
  Receipt Date: 20201201
  Transmission Date: 20210113
  Serious: Yes (Death, Life-Threatening, Hospitalization, Other)
  Sender: FDA-Public Use
  Company Number: DE-CELGENEUS-DEU-20200603423

PATIENT
  Age: 76 Year
  Sex: Female

DRUGS (17)
  1. L-THYROXIN [Concomitant]
     Active Substance: LEVOTHYROXINE SODIUM
     Indication: THYROID NODULE REMOVAL
     Dosage: 100 MICROGRAM
     Route: 048
  2. AMLODIPIN [Concomitant]
     Active Substance: AMLODIPINE BESYLATE
     Indication: HYPERTENSION
     Dosage: 5 MILLIGRAM
     Route: 048
  3. CYCLOPHOSPHAMIDE. [Suspect]
     Active Substance: CYCLOPHOSPHAMIDE
     Indication: PLASMA CELL MYELOMA
  4. FILGRASTIM [Suspect]
     Active Substance: FILGRASTIM
     Indication: HAEMATOPOIETIC STEM CELL MOBILISATION
     Dosage: 480 MICROGRAM
     Route: 058
     Dates: start: 20160703, end: 20160712
  5. POMALIDOMIDE [Suspect]
     Active Substance: POMALIDOMIDE
     Indication: PLASMA CELL MYELOMA
     Dosage: 4 MILLIGRAM
     Route: 048
     Dates: start: 201903, end: 201909
  6. DEXAMETHASONE. [Suspect]
     Active Substance: DEXAMETHASONE
     Indication: PLASMA CELL MYELOMA
     Dosage: 40 MILLIGRAM
     Route: 048
     Dates: start: 20160324, end: 20170803
  7. CYCLOPHOSPHAMIDE. [Suspect]
     Active Substance: CYCLOPHOSPHAMIDE
     Indication: HAEMATOPOIETIC STEM CELL MOBILISATION
     Route: 065
     Dates: start: 20160629, end: 20160701
  8. LENALIDOMIDE [Suspect]
     Active Substance: LENALIDOMIDE
     Indication: PLASMA CELL MYELOMA
     Dosage: 25 MILLIGRAM
     Route: 048
     Dates: start: 20160324, end: 20160608
  9. LENALIDOMIDE [Suspect]
     Active Substance: LENALIDOMIDE
     Dosage: 25 MILLIGRAM
     Route: 048
     Dates: start: 20160728, end: 20170802
  10. DEXAMETHASONE. [Suspect]
     Active Substance: DEXAMETHASONE
     Route: 048
     Dates: start: 201801, end: 201807
  11. ELOTUZUMAB. [Concomitant]
     Active Substance: ELOTUZUMAB
     Indication: PLASMA CELL MYELOMA
     Route: 065
     Dates: start: 201903, end: 201909
  12. FILGRASTIM [Suspect]
     Active Substance: FILGRASTIM
     Indication: PLASMA CELL MYELOMA
     Route: 058
     Dates: start: 20160629, end: 20160701
  13. MILNACIPRAN [Concomitant]
     Active Substance: MILNACIPRAN
     Indication: DEPRESSION
     Dosage: 50 MILLIGRAM
     Route: 048
  14. LYRICA [Concomitant]
     Active Substance: PREGABALIN
     Indication: DEPRESSION
     Dosage: 100 MILLIGRAM
     Route: 048
  15. ETOPOSIDE. [Suspect]
     Active Substance: ETOPOSIDE
     Indication: HAEMATOPOIETIC STEM CELL MOBILISATION
     Route: 065
     Dates: start: 20160629, end: 20160701
  16. ETOPOSIDE. [Suspect]
     Active Substance: ETOPOSIDE
     Indication: PLASMA CELL MYELOMA
  17. SEROQUEL [Concomitant]
     Active Substance: QUETIAPINE FUMARATE
     Indication: DEPRESSION
     Dosage: 50 MILLIGRAM
     Route: 048

REACTIONS (1)
  - Diffuse large B-cell lymphoma [Fatal]

NARRATIVE: CASE EVENT DATE: 20191024
